FAERS Safety Report 5048486-6 (Version None)
Quarter: 2006Q3

REPORT INFORMATION
  Report Type: 
  Country: None (occurrence: None)
  Receive Date: 20060705
  Receipt Date: 20060618
  Transmission Date: 20061208
  Serious: Yes (Disabling)
  Sender: FDA-Public Use
  Company Number: 8017561

PATIENT
  Sex: Female

DRUGS (5)
  1. KEPPRA [Suspect]
     Indication: EPILEPSY
     Dosage: 2500 MG /D PO
     Route: 048
     Dates: end: 20060611
  2. KEPPRA [Suspect]
     Indication: EPILEPSY
     Dosage: 1500 MG 2/D PO
     Route: 048
     Dates: start: 20060612, end: 20060619
  3. KEPPRA [Suspect]
     Indication: EPILEPSY
     Dosage: 2750 MG PO
     Route: 048
     Dates: start: 20060620
  4. ERGENYL CHRONO [Concomitant]
  5. VPA CHRONO [Concomitant]

REACTIONS (3)
  - GRAND MAL CONVULSION [None]
  - HALLUCINATION [None]
  - VISUAL DISTURBANCE [None]
